FAERS Safety Report 6270712-6 (Version None)
Quarter: 2009Q3

REPORT INFORMATION
  Report Type: 
  Country: None (occurrence: None)
  Receive Date: 20090716
  Receipt Date: 20090714
  Transmission Date: 20100115
  Serious: Yes (Hospitalization)
  Sender: FDA-Public Use
  Company Number: US-AMGEN-QUU354714

PATIENT

DRUGS (11)
  1. EPOGEN [Suspect]
     Indication: DIALYSIS
  2. SENSIPAR [Suspect]
     Indication: HYPERPARATHYROIDISM SECONDARY
     Dates: start: 20070101
  3. INSULIN [Concomitant]
  4. VERAPAMIL [Concomitant]
  5. QUINAPRIL [Concomitant]
  6. MINOXIDIL [Concomitant]
  7. XANAX [Concomitant]
  8. COZAAR [Concomitant]
  9. NEXIUM [Concomitant]
  10. CENTRUM [Concomitant]
  11. ASPIRIN [Concomitant]

REACTIONS (1)
  - FULL BLOOD COUNT DECREASED [None]
